FAERS Safety Report 22035950 (Version 1)
Quarter: 2023Q1

REPORT INFORMATION
  Report Type: Spontaneous
  Country: EG (occurrence: EG)
  Receive Date: 20230224
  Receipt Date: 20230224
  Transmission Date: 20230417
  Serious: Yes (Other)
  Sender: FDA-Public Use
  Company Number: EG-NOVOPROD-1022628

PATIENT
  Sex: Male
  Weight: 65 kg

DRUGS (3)
  1. INSULIN HUMAN [Suspect]
     Active Substance: INSULIN HUMAN
     Indication: Diabetes mellitus
     Dosage: SOMETIMES TAKE 15 U OR 16 U
  2. INSULIN HUMAN [Suspect]
     Active Substance: INSULIN HUMAN
     Dosage: 30 IU, QD(20 U MORNING / 10 U NIGHT,SOMETIMES TAKE 15 U OR 16 U)
  3. CIDOPHAGE [Concomitant]
     Indication: Diabetes mellitus
     Dosage: 1 TABLET BEFORE LUNCH 1 TABLET ON NIGHT
     Dates: start: 2018

REACTIONS (9)
  - Toe amputation [Unknown]
  - Deafness [Not Recovered/Not Resolved]
  - Hypoglycaemic unconsciousness [Unknown]
  - Hypoacusis [Not Recovered/Not Resolved]
  - Visual impairment [Not Recovered/Not Resolved]
  - Blood pressure increased [Unknown]
  - Nervousness [Unknown]
  - Hypoglycaemia [Not Recovered/Not Resolved]
  - Diabetes mellitus inadequate control [Unknown]
